FAERS Safety Report 24884713 (Version 1)
Quarter: 2025Q1

REPORT INFORMATION
  Report Type: Spontaneous
  Country: US (occurrence: US)
  Receive Date: 20250124
  Receipt Date: 20250124
  Transmission Date: 20250409
  Serious: No
  Sender: SANOFI AVENTIS
  Company Number: US-SA-2025SA021308

PATIENT
  Age: 58 Year
  Sex: Female

DRUGS (14)
  1. KEVZARA [Suspect]
     Active Substance: SARILUMAB
     Indication: Rheumatoid arthritis
     Dosage: 200 MG, QOW
     Route: 058
  2. ADVAIR HFA [Concomitant]
     Active Substance: FLUTICASONE PROPIONATE\SALMETEROL XINAFOATE
  3. ATORVASTATIN [Concomitant]
     Active Substance: ATORVASTATIN
  4. ESOMEPRAZOLE [Concomitant]
     Active Substance: ESOMEPRAZOLE
  5. EZETIMIBE [Concomitant]
     Active Substance: EZETIMIBE
  6. FLUTICASONE [Concomitant]
     Active Substance: FLUTICASONE
  7. GABAPENTIN [Concomitant]
     Active Substance: GABAPENTIN
  8. LEVOCETIRIZINE [Concomitant]
     Active Substance: LEVOCETIRIZINE
  9. LISINOPRIL H [Concomitant]
  10. MONTELUKAST [Concomitant]
     Active Substance: MONTELUKAST
  11. NIACINAMIDE [Concomitant]
     Active Substance: NIACINAMIDE
  12. OZEMPIC [Concomitant]
     Active Substance: SEMAGLUTIDE
  13. PREDNISONE [Concomitant]
     Active Substance: PREDNISONE
  14. SPIRIVA [Concomitant]
     Active Substance: TIOTROPIUM BROMIDE MONOHYDRATE

REACTIONS (2)
  - Pain [Not Recovered/Not Resolved]
  - Hepatic enzyme increased [Not Recovered/Not Resolved]
